FAERS Safety Report 15837056 (Version 1)
Quarter: 2019Q1

REPORT INFORMATION
  Report Type: Spontaneous
  Country: DK (occurrence: DK)
  Receive Date: 20190117
  Receipt Date: 20190117
  Transmission Date: 20190417
  Serious: Yes (Life-Threatening, Hospitalization)
  Sender: FDA-Public Use
  Company Number: DK-PURDUE-GBR-2019-0063209

PATIENT
  Age: 84 Year
  Sex: Female

DRUGS (9)
  1. AZOPT [Concomitant]
     Active Substance: BRINZOLAMIDE
     Indication: GLAUCOMA
     Dosage: 2 DF, DAILY (STYRKE: 10 MG/ML)
     Route: 050
     Dates: start: 20180904
  2. OXYCODONE HYDROCHLORIDE. [Suspect]
     Active Substance: OXYCODONE HYDROCHLORIDE
     Indication: PROCEDURAL PAIN
     Dosage: 5 MG, PRN (STYRKE: 5 MG.)
     Route: 048
     Dates: start: 20181116, end: 201811
  3. PANODIL [Concomitant]
     Active Substance: ACETAMINOPHEN
     Indication: PAIN
     Dosage: 4000 MG, DAILY (STYRKE: 500 MG.)
     Route: 048
     Dates: start: 20181115
  4. VENTOLIN [Concomitant]
     Active Substance: ALBUTEROL SULFATE
     Indication: BRONCHOSPASM
     Dosage: 1 DF, PRN (STYRKE: 0.2 MG I DISKOS)
     Route: 055
     Dates: start: 20180215
  5. ALPHAGAN P [Concomitant]
     Active Substance: BRIMONIDINE TARTRATE
     Indication: GLAUCOMA
     Dosage: 2 DF, DAILY (STYRKE: 2 MG/ML)
     Route: 050
     Dates: start: 20180103
  6. MORFIN                             /00036303/ [Concomitant]
     Active Substance: MORPHINE HYDROCHLORIDE
     Indication: PAIN
     Dosage: DOSIS: UKENDT. STYRKE: UKENDT.
     Route: 042
     Dates: start: 201811
  7. SERENASE [Concomitant]
     Indication: PRODUCT USED FOR UNKNOWN INDICATION
     Dosage: DOSIS: UKENDT. STYRKE: UKENDT.
  8. FORMOTEROL EASYHALER [Concomitant]
     Indication: CHRONIC OBSTRUCTIVE PULMONARY DISEASE
     Dosage: 2 DF, DAILY (STYRKE: 12 MIKROGRAM/DOSIS)
     Route: 055
     Dates: start: 20180216
  9. DUOTRAV [Concomitant]
     Active Substance: TIMOLOL MALEATE\TRAVOPROST
     Indication: GLAUCOMA
     Dosage: 1 DF, DAILY (STYRKE: 40 MIKROGRAM/ML + 5 MG/ML.)
     Route: 050

REACTIONS (1)
  - Respiratory acidosis [Recovered/Resolved]

NARRATIVE: CASE EVENT DATE: 20181119
